FAERS Safety Report 17954148 (Version 8)
Quarter: 2020Q3

REPORT INFORMATION
  Report Type: Other
  Country: CA (occurrence: CA)
  Receive Date: 20200629
  Receipt Date: 20200814
  Transmission Date: 20201103
  Serious: Yes (Other)
  Sender: FDA-Public Use
  Company Number: CA-ROCHE-2609475

PATIENT
  Age: 69 Year
  Sex: Female

DRUGS (18)
  1. ESBRIET [Suspect]
     Active Substance: PIRFENIDONE
     Route: 048
     Dates: start: 20200526, end: 2020
  2. PANTOPRAZOLE [Concomitant]
     Active Substance: PANTOPRAZOLE
  3. ESBRIET [Suspect]
     Active Substance: PIRFENIDONE
     Dosage: ONGOING
     Route: 048
     Dates: start: 202006
  4. ESBRIET [Suspect]
     Active Substance: PIRFENIDONE
     Dosage: 2?1?2
     Route: 048
     Dates: start: 20200709, end: 20200721
  5. ARNUITY ELLIPTA [Concomitant]
     Active Substance: FLUTICASONE FUROATE
  6. ESBRIET [Suspect]
     Active Substance: PIRFENIDONE
     Dosage: 3?2?3
     Route: 048
     Dates: start: 20200611
  7. ESBRIET [Suspect]
     Active Substance: PIRFENIDONE
     Dosage: 2?1?1
     Route: 048
     Dates: start: 20200630
  8. CITALOPRAM [Concomitant]
     Active Substance: CITALOPRAM HYDROBROMIDE
  9. AXERT [Concomitant]
     Active Substance: ALMOTRIPTAN MALATE
  10. ESBRIET [Suspect]
     Active Substance: PIRFENIDONE
     Dosage: 2?2?2
     Route: 048
     Dates: start: 20200722
  11. DOXYCYCLINE. [Suspect]
     Active Substance: DOXYCYCLINE
     Indication: SINUSITIS
     Route: 065
  12. SYNTHROID [Concomitant]
     Active Substance: LEVOTHYROXINE SODIUM
  13. CODEINE CONTIN [Concomitant]
     Active Substance: CODEINE SULFATE
  14. OXYCODONE [Concomitant]
     Active Substance: OXYCODONE
  15. LORAZEPAM. [Concomitant]
     Active Substance: LORAZEPAM
  16. ESBRIET [Suspect]
     Active Substance: PIRFENIDONE
     Indication: IDIOPATHIC PULMONARY FIBROSIS
     Route: 048
     Dates: start: 20200519, end: 20200525
  17. ESBRIET [Suspect]
     Active Substance: PIRFENIDONE
     Dosage: 2?2?3
     Route: 048
     Dates: start: 20200602, end: 202006
  18. SALBUTAMOL [Concomitant]
     Active Substance: ALBUTEROL

REACTIONS (15)
  - Arthropathy [Unknown]
  - Illness [Unknown]
  - Fatigue [Recovering/Resolving]
  - Peripheral swelling [Recovering/Resolving]
  - Nausea [Unknown]
  - Gastric ulcer haemorrhage [Unknown]
  - Constipation [Recovering/Resolving]
  - Feeding disorder [Unknown]
  - Dizziness [Unknown]
  - Fatigue [Unknown]
  - Headache [Unknown]
  - Erythema [Recovering/Resolving]
  - Abdominal distension [Unknown]
  - Nausea [Unknown]
  - Sinusitis [Unknown]

NARRATIVE: CASE EVENT DATE: 202006
